FAERS Safety Report 7373167-3 (Version None)
Quarter: 2011Q1

REPORT INFORMATION
  Report Type: 
  Country: None (occurrence: None)
  Receive Date: 20110324
  Receipt Date: 20110315
  Transmission Date: 20110831
  Serious: Yes (Hospitalization)
  Sender: FDA-Public Use
  Company Number: FR-ASTRAZENECA-2011SE15154

PATIENT
  Age: 9766 Day
  Sex: Female

DRUGS (2)
  1. NAROPIN [Suspect]
     Indication: EPIDURAL ANAESTHESIA
     Route: 065
     Dates: start: 20101216, end: 20101216
  2. SUFENTANIL CITRATE [Suspect]
     Indication: EPIDURAL ANAESTHESIA
     Route: 065
     Dates: start: 20101216, end: 20101216

REACTIONS (1)
  - MENINGITIS ASEPTIC [None]
